FAERS Safety Report 9111923 (Version 1)
Quarter: 2013Q1

REPORT INFORMATION
  Report Type: Spontaneous
  Country: US (occurrence: US)
  Receive Date: 20130219
  Receipt Date: 20130219
  Transmission Date: 20140127
  Serious: No
  Sender: FDA-Public Use
  Company Number: US-BRISTOL-MYERS SQUIBB COMPANY-17029877

PATIENT
  Age: 58 Year
  Sex: Female
  Weight: 70.75 kg

DRUGS (6)
  1. ABATACEPT SUBQ INJECTION 125MG/ML [Suspect]
     Indication: RHEUMATOID ARTHRITIS
     Dosage: LAST INJ: 3OCT12
     Route: 058
     Dates: start: 201202
  2. VITAMIN B12 [Concomitant]
     Dosage: 1 DF= SHOT
  3. CALCIUM [Concomitant]
  4. OMEGA-3 [Concomitant]
  5. VITAMIN C [Concomitant]
  6. VOLTAREN [Concomitant]

REACTIONS (1)
  - Nasopharyngitis [Not Recovered/Not Resolved]
